FAERS Safety Report 5342153-7 (Version None)
Quarter: 2007Q2

REPORT INFORMATION
  Report Type: 
  Country: None (occurrence: None)
  Receive Date: 20070601
  Receipt Date: 20070529
  Transmission Date: 20071010
  Serious: Yes (Other)
  Sender: FDA-Public Use
  Company Number: A0653210A

PATIENT
  Age: 54 Year
  Sex: Male

DRUGS (8)
  1. AVANDAMET [Suspect]
     Indication: DRUG USE FOR UNKNOWN INDICATION
     Route: 048
  2. AVODART [Suspect]
     Indication: BENIGN PROSTATIC HYPERPLASIA
     Dosage: 1CAP PER DAY
     Route: 048
     Dates: start: 20050101
  3. UNSPECIFIED MEDICATION [Concomitant]
  4. FLOMAX [Concomitant]
  5. TESTOSTERONE [Concomitant]
  6. KLONOPIN [Concomitant]
  7. AMBIEN [Concomitant]
  8. TOPAMAX [Concomitant]

REACTIONS (8)
  - DRUG DISPENSING ERROR [None]
  - DYSURIA [None]
  - FATIGUE [None]
  - HYPOGLYCAEMIA [None]
  - INCREASED APPETITE [None]
  - POLLAKIURIA [None]
  - THIRST [None]
  - WEIGHT INCREASED [None]
